FAERS Safety Report 24801604 (Version 1)
Quarter: 2025Q1

REPORT INFORMATION
  Report Type: Spontaneous
  Country: US (occurrence: US)
  Receive Date: 20250102
  Receipt Date: 20250102
  Transmission Date: 20250409
  Serious: No
  Sender: PFIZER
  Company Number: US-SEATTLE GENETICS-2024SGN00923

PATIENT
  Age: 64 Year
  Sex: Female

DRUGS (1)
  1. TUKYSA [Suspect]
     Active Substance: TUCATINIB
     Dosage: 250 MG, 2X/DAY (150MG ONE TABLET WITH 50MG TWO TABLETS)
     Route: 065

REACTIONS (2)
  - Infection [Unknown]
  - Swelling face [Recovering/Resolving]
